FAERS Safety Report 5507436-6 (Version None)
Quarter: 2007Q4

REPORT INFORMATION
  Report Type: 
  Country: None (occurrence: None)
  Receive Date: 20071106
  Receipt Date: 20071024
  Transmission Date: 20080405
  Serious: Yes (Hospitalization)
  Sender: FDA-Public Use
  Company Number: US-AMGEN-QUU248278

PATIENT
  Sex: Female
  Weight: 56.8 kg

DRUGS (5)
  1. NEULASTA [Suspect]
     Indication: CHEMOTHERAPY
     Route: 058
     Dates: start: 20071004
  2. SIROLIMUS [Concomitant]
  3. ETOPOSIDE [Concomitant]
     Route: 065
     Dates: start: 20071001, end: 20071003
  4. CARBOPLATIN [Concomitant]
     Dates: start: 20071001
  5. MYCOPHENOLATE MOFETIL [Concomitant]

REACTIONS (2)
  - DRUG INEFFECTIVE [None]
  - FEBRILE NEUTROPENIA [None]
